FAERS Safety Report 12251506 (Version 1)
Quarter: 2016Q2

REPORT INFORMATION
  Report Type: Spontaneous
  Country: US (occurrence: US)
  Receive Date: 20160410
  Receipt Date: 20160410
  Transmission Date: 20160815
  Serious: No
  Sender: FDA-Public Use
  Company Number: US-JNJFOC-20160225016

PATIENT
  Sex: Female

DRUGS (5)
  1. INVEGA SUSTENNA [Suspect]
     Active Substance: PALIPERIDONE PALMITATE
     Indication: SCHIZOPHRENIA
     Route: 030
  2. HALDOL [Concomitant]
     Active Substance: HALOPERIDOL
     Route: 065
  3. VALIUM [Concomitant]
     Active Substance: DIAZEPAM
     Route: 065
  4. CLOZAPINE. [Concomitant]
     Active Substance: CLOZAPINE
     Route: 065
  5. INVEGA SUSTENNA [Suspect]
     Active Substance: PALIPERIDONE PALMITATE
     Indication: SCHIZOPHRENIA
     Route: 030
     Dates: start: 20160114

REACTIONS (2)
  - Motion sickness [Unknown]
  - Balance disorder [Unknown]
